FAERS Safety Report 6737642-4 (Version None)
Quarter: 2010Q2

REPORT INFORMATION
  Report Type: 
  Country: None (occurrence: None)
  Receive Date: 20100519
  Receipt Date: 20100510
  Transmission Date: 20101027
  Serious: Yes (Hospitalization)
  Sender: FDA-Public Use
  Company Number: 009730

PATIENT
  Age: 54 Year
  Sex: Male

DRUGS (10)
  1. PLETAL [Suspect]
     Dosage: ORAL
     Route: 048
     Dates: start: 20090928
  2. OMEPRAZOLE [Concomitant]
  3. METFORMIN HCL [Concomitant]
  4. LORAZEPAM [Concomitant]
  5. GLIMEPIRIDE [Concomitant]
  6. MICARDIS [Concomitant]
  7. LORMETAZEPAM (LORMETAZEPAM) [Concomitant]
  8. CITALOPRAM HYDROBROMIDE [Concomitant]
  9. ASPIRIN [Concomitant]
  10. OLANZAPINE [Concomitant]

REACTIONS (3)
  - LEFT VENTRICULAR FAILURE [None]
  - MITRAL VALVE INCOMPETENCE [None]
  - SINUS TACHYCARDIA [None]
